FAERS Safety Report 18032355 (Version 2)
Quarter: 2020Q3

REPORT INFORMATION
  Report Type: Spontaneous
  Country: US (occurrence: US)
  Receive Date: 20200716
  Receipt Date: 20200722
  Transmission Date: 20201103
  Serious: Yes (Hospitalization)
  Sender: FDA-Public Use
  Company Number: US-BIOVITRUM-2020US3701

PATIENT
  Age: 58 Year
  Sex: Male
  Weight: 107 kg

DRUGS (5)
  1. ANAKINRA [Suspect]
     Active Substance: ANAKINRA
     Indication: LYMPHOCYTE ADOPTIVE THERAPY
     Route: 058
     Dates: start: 20200701, end: 20200710
  2. ACYCLOVIR. [Concomitant]
     Active Substance: ACYCLOVIR
     Indication: ANTIVIRAL PROPHYLAXIS
     Route: 048
     Dates: start: 20200709, end: 20200709
  3. FLUCONAZOLE. [Concomitant]
     Active Substance: FLUCONAZOLE
     Indication: ANTIVIRAL PROPHYLAXIS
     Route: 048
     Dates: start: 20200709, end: 20200709
  4. FLUDARABINE [Concomitant]
     Active Substance: FLUDARABINE PHOSPHATE
     Dates: start: 20200624, end: 20200626
  5. CYCLOPHOSPHAMIDE. [Concomitant]
     Active Substance: CYCLOPHOSPHAMIDE
     Dates: start: 20200624, end: 20200626

REACTIONS (2)
  - Pyrexia [Recovered/Resolved]
  - Off label use [Recovered/Resolved]

NARRATIVE: CASE EVENT DATE: 20200701
